FAERS Safety Report 10329537 (Version 1)
Quarter: 2014Q3

REPORT INFORMATION
  Report Type: Report from Study
  Country: US (occurrence: US)
  Receive Date: 20140721
  Receipt Date: 20140721
  Transmission Date: 20150326
  Serious: Yes (Other)
  Sender: FDA-Public Use
  Company Number: US-BAYER-2014-102869

PATIENT
  Age: 87 Year
  Sex: Male

DRUGS (1)
  1. STIVARGA [Suspect]
     Active Substance: REGORAFENIB
     Indication: RECTAL CANCER
     Dosage: 160 MG, UNK
     Route: 048
     Dates: start: 20140701, end: 20140707

REACTIONS (4)
  - Laryngeal oedema [Not Recovered/Not Resolved]
  - Laryngeal pain [None]
  - Swollen tongue [Not Recovered/Not Resolved]
  - Glossodynia [None]

NARRATIVE: CASE EVENT DATE: 20140707
